FAERS Safety Report 23084375 (Version 4)
Quarter: 2024Q1

REPORT INFORMATION
  Report Type: Spontaneous
  Country: US (occurrence: US)
  Receive Date: 20231019
  Receipt Date: 20240207
  Transmission Date: 20240409
  Serious: Yes (Death, Hospitalization, Other)
  Sender: FDA-Public Use
  Company Number: US-PFIZER INC-202300329841

PATIENT
  Age: 76 Year
  Sex: Male
  Weight: 65.714 kg

DRUGS (1)
  1. VYNDAMAX [Suspect]
     Active Substance: TAFAMIDIS
     Indication: Hereditary neuropathic amyloidosis
     Dosage: 61 MG, 1X/DAY
     Route: 048

REACTIONS (2)
  - Death [Fatal]
  - Cardiac disorder [Unknown]
